FAERS Safety Report 5181035-0 (Version None)
Quarter: 2006Q4

REPORT INFORMATION
  Report Type: 
  Country: None (occurrence: None)
  Receive Date: 20061220
  Receipt Date: 20060307
  Transmission Date: 20070319
  Serious: Yes (Death)
  Sender: FDA-Public Use
  Company Number: US-ELI_LILLY_AND_COMPANY-US200606000965

PATIENT
  Age: 84 Year
  Sex: Female
  Weight: 45.351 kg

DRUGS (1)
  1. ZYPREXA [Suspect]
     Indication: ANXIETY
     Dates: start: 20010202, end: 20010918

REACTIONS (2)
  - DEATH [None]
  - HYPERGLYCAEMIA [None]
